FAERS Safety Report 6316562-3 (Version None)
Quarter: 2009Q3

REPORT INFORMATION
  Report Type: 
  Country: None (occurrence: None)
  Receive Date: 20090820
  Receipt Date: 20090807
  Transmission Date: 20100115
  Serious: Yes (Other)
  Sender: FDA-Public Use
  Company Number: PHHY2009MX33766

PATIENT
  Sex: Female

DRUGS (4)
  1. DIOVAN HCT [Suspect]
     Indication: HYPERTENSION
     Dosage: 1 DF, QD
     Dates: start: 20050201
  2. PLAVIX [Concomitant]
     Dosage: 0.5 TABLET DAILY
  3. VARITON [Concomitant]
     Indication: CARDIOVASCULAR DISORDER
     Dosage: 2 DF, QD
  4. NIMOTOP [Concomitant]
     Dosage: 1 TABLET PER DAY
     Dates: start: 19590101

REACTIONS (3)
  - CEREBRAL HYPOPERFUSION [None]
  - DIZZINESS [None]
  - HYPOGLYCAEMIA [None]
